FAERS Safety Report 5446737-7 (Version None)
Quarter: 2007Q3

REPORT INFORMATION
  Report Type: 
  Country: None (occurrence: None)
  Receive Date: 20070907
  Receipt Date: 20070228
  Transmission Date: 20080115
  Serious: No
  Sender: FDA-Public Use
  Company Number: US-BOEHRINGER INGELHEIM PHARMACEUTICALS, INC.-2006-BP-07163BP

PATIENT
  Sex: Male
  Weight: 96.7 kg

DRUGS (56)
  1. MIRAPEX [Suspect]
     Indication: PARKINSON'S DISEASE
     Route: 048
     Dates: start: 20001120, end: 20040201
  2. PAXIL [Concomitant]
     Indication: PANIC ATTACK
     Dates: start: 19910101
  3. LIPITOR [Concomitant]
     Indication: HYPERCHOLESTEROLAEMIA
     Route: 048
     Dates: start: 20000117
  4. LIQUID TEARS [Concomitant]
     Indication: DRY EYE
     Dates: start: 20010801
  5. AMBIEN [Concomitant]
     Indication: INSOMNIA
     Route: 048
     Dates: start: 19981217
  6. REMERON [Concomitant]
     Indication: DEPRESSION
     Dates: start: 20020101, end: 20041122
  7. ALPRAZOLAM [Concomitant]
     Indication: ANXIETY
     Dates: start: 19970402
  8. EFFEXOR [Concomitant]
     Dates: start: 20010801, end: 20020101
  9. SINEMET [Concomitant]
     Indication: PARKINSON'S DISEASE
     Dates: start: 19990518
  10. ZOCOR [Concomitant]
     Indication: HYPERLIPIDAEMIA
     Route: 048
     Dates: start: 20010314
  11. PREVACID [Concomitant]
     Indication: DYSPEPSIA
  12. PREVACID [Concomitant]
  13. PREVACID [Concomitant]
     Indication: GASTROOESOPHAGEAL REFLUX DISEASE
  14. WELLBUTRIN EXTENDED TABS [Concomitant]
     Indication: DEPRESSION
     Dates: start: 20040216, end: 20050101
  15. STALEVO 100 [Concomitant]
     Indication: PARKINSON'S DISEASE
     Dates: start: 20050912, end: 20051104
  16. ADVAIR DISKUS 100/50 [Concomitant]
     Dates: start: 20041117
  17. VICODIN [Concomitant]
     Indication: PAIN
     Dates: start: 20000808
  18. HALCION [Concomitant]
     Indication: INSOMNIA
     Dates: start: 20041122
  19. PRILOSEC [Concomitant]
     Indication: GASTROOESOPHAGEAL REFLUX DISEASE
     Dates: start: 19990115
  20. ALBUTEROL [Concomitant]
     Indication: ASTHMA
     Route: 055
     Dates: start: 20051028
  21. FLU SHOT [Concomitant]
     Dates: start: 20051101
  22. AMANTADINE HCL [Concomitant]
     Indication: DYSKINESIA
     Dates: start: 20050910, end: 20060301
  23. BACLOFEN [Concomitant]
     Indication: BLEPHAROSPASM
     Dates: start: 20000509
  24. BOTOX [Concomitant]
     Indication: BLEPHAROSPASM
     Dates: start: 20010702
  25. TRAZODONE HCL [Concomitant]
     Indication: INSOMNIA
     Dates: start: 20010801, end: 20010913
  26. VIAGRA [Concomitant]
     Dates: start: 19980623
  27. RITALIN [Concomitant]
     Route: 048
     Dates: start: 20010521
  28. CONCERTA [Concomitant]
     Route: 048
     Dates: start: 20010619
  29. PROVIGIL [Concomitant]
     Indication: FATIGUE
     Route: 048
     Dates: start: 20010703
  30. FLONASE [Concomitant]
     Dates: start: 20020306
  31. PERCOCET [Concomitant]
     Indication: PAIN
     Route: 048
     Dates: start: 20020403
  32. SEROQUEL [Concomitant]
     Indication: INSOMNIA
     Dates: start: 20010913, end: 20011001
  33. CELEXA [Concomitant]
     Indication: DEPRESSION
     Dates: start: 20010201
  34. PSORCON [Concomitant]
     Dates: start: 20020801
  35. ACLOVATE [Concomitant]
  36. ZOLOFT [Concomitant]
     Route: 048
  37. LOTEMAX [Concomitant]
     Route: 031
  38. CRESTOR [Concomitant]
     Route: 048
     Dates: start: 20031001
  39. NALTREXONE [Concomitant]
     Route: 048
     Dates: start: 20031201
  40. CIALIS [Concomitant]
     Dates: start: 20050501
  41. METFORMIN ER [Concomitant]
     Dates: start: 20060401
  42. GABAPENTIN [Concomitant]
     Dates: start: 20060901
  43. DICLOFENAC [Concomitant]
     Dates: start: 20050501
  44. NORCO [Concomitant]
     Dates: start: 20030101
  45. DIFLORASONE [Concomitant]
     Dates: start: 20011101
  46. BENADRYL [Concomitant]
     Indication: SLEEP DISORDER
     Dates: start: 20010215
  47. EFFEXOR XR [Concomitant]
     Dates: start: 20011231
  48. LEVODOPA [Concomitant]
     Dates: start: 20050910
  49. WELLBUTRIN SR [Concomitant]
     Route: 048
     Dates: start: 20040317
  50. REMERON [Concomitant]
     Route: 048
     Dates: start: 20041206
  51. DIPROLENE AF [Concomitant]
     Indication: ECZEMA
     Dates: start: 20000112
  52. STALEVO 100 [Concomitant]
     Route: 048
     Dates: start: 20040216, end: 20051201
  53. COMBIVENT [Concomitant]
     Indication: ASTHMA
     Dates: start: 20041116
  54. VENTOLIN [Concomitant]
     Indication: ASTHMA
     Dates: start: 20040314
  55. FLOVENT [Concomitant]
     Indication: ASTHMA
     Dates: start: 20040317
  56. SEREVENT [Concomitant]
     Indication: ASTHMA
     Dates: start: 20040317

REACTIONS (5)
  - EMOTIONAL DISTRESS [None]
  - HYPERSEXUALITY [None]
  - INSOMNIA [None]
  - PATHOLOGICAL GAMBLING [None]
  - SOMNOLENCE [None]
